FAERS Safety Report 23396545 (Version 1)
Quarter: 2024Q1

REPORT INFORMATION
  Report Type: Report from Study
  Country: AR (occurrence: AR)
  Receive Date: 20240112
  Receipt Date: 20240112
  Transmission Date: 20240410
  Serious: Yes (Other)
  Sender: FDA-Public Use
  Company Number: AR-JNJFOC-20240109607

PATIENT
  Age: 73 Year
  Sex: Female
  Weight: 53 kg

DRUGS (2)
  1. SIMPONI [Suspect]
     Active Substance: GOLIMUMAB
     Indication: Rheumatoid arthritis
     Route: 058
     Dates: start: 20220912
  2. MACRIL [CENTELLA ASIATICA;METRONIDAZOLE;MICONAZOLE NITRATE;NEOMYCIN SU [Concomitant]

REACTIONS (1)
  - Haemangioma [Recovering/Resolving]

NARRATIVE: CASE EVENT DATE: 20230801
